FAERS Safety Report 4317785-5 (Version None)
Quarter: 2004Q1

REPORT INFORMATION
  Report Type: 
  Country: None (occurrence: None)
  Receive Date: 20040315
  Receipt Date: 20031216
  Transmission Date: 20041129
  Serious: Yes (Hospitalization, Other)
  Sender: FDA-Public Use
  Company Number: PHFR2003GB04865

PATIENT
  Age: 57 Year
  Sex: Male

DRUGS (10)
  1. CLOZARIL [Suspect]
     Indication: SCHIZOPHRENIA
     Route: 048
     Dates: start: 20000211
  2. CLOZARIL [Suspect]
     Dosage: 500 MG/DAY
     Route: 048
     Dates: start: 20020607, end: 20021218
  3. CLOZARIL [Suspect]
     Dosage: 400 MG/DAY
     Route: 048
     Dates: start: 20020108
  4. CLOZARIL [Suspect]
     Dosage: 425 MG/DAY
     Route: 048
     Dates: start: 20030507
  5. ASPIRIN [Concomitant]
     Dosage: 75 MG/DAY
     Route: 048
  6. SIMVASTATIN [Concomitant]
     Indication: BLOOD CHOLESTEROL
     Dosage: 10 MG/DAY
     Route: 048
     Dates: start: 20020911
  7. FERROUS SULFATE TAB [Concomitant]
     Dosage: 600 MG/DAY
     Route: 048
     Dates: start: 20030514
  8. CITALOPRAM [Concomitant]
     Dosage: 40 MG/DAY
     Route: 048
     Dates: start: 20020607
  9. CITALOPRAM [Concomitant]
     Dosage: 60 MG/DAY
     Route: 048
  10. LANSOPRAZOLE [Concomitant]
     Indication: GASTROOESOPHAGEAL REFLUX DISEASE
     Dosage: 15 MG/DAY
     Route: 048
     Dates: start: 20030515

REACTIONS (7)
  - ASTHENIA [None]
  - ATAXIA [None]
  - CONVULSION [None]
  - DRUG LEVEL INCREASED [None]
  - LOSS OF CONSCIOUSNESS [None]
  - MYOCLONUS [None]
  - TRANSIENT ISCHAEMIC ATTACK [None]
